FAERS Safety Report 16975705 (Version 2)
Quarter: 2019Q4

REPORT INFORMATION
  Report Type: Report from Study
  Country: US (occurrence: US)
  Receive Date: 20191030
  Receipt Date: 20191122
  Transmission Date: 20200122
  Serious: Yes (Death, Hospitalization, Other)
  Sender: FDA-Public Use
  Company Number: US-BRISTOL-MYERS SQUIBB COMPANY-BMS-2019-102462

PATIENT
  Age: 68 Year
  Sex: Female
  Weight: 58.3 kg

DRUGS (3)
  1. ENTINOSTAT [Suspect]
     Active Substance: ENTINOSTAT
     Indication: BREAST CANCER
     Dosage: 22 MILLIGRAM
     Route: 048
     Dates: start: 20190828, end: 20191002
  2. NIVOLUMAB [Suspect]
     Active Substance: NIVOLUMAB
     Indication: BREAST CANCER
     Dosage: 326 MILLIGRAM
     Route: 042
     Dates: start: 20190911, end: 20190925
  3. IPILIMUMAB [Suspect]
     Active Substance: IPILIMUMAB
     Indication: BREAST CANCER
     Dosage: 55 MILLIGRAM
     Route: 042
     Dates: start: 20190911, end: 20190911

REACTIONS (3)
  - Malignant neoplasm progression [Fatal]
  - Urinary tract infection [Recovered/Resolved]
  - Mental status changes [Recovered/Resolved]

NARRATIVE: CASE EVENT DATE: 20191007
